FAERS Safety Report 19876694 (Version 2)
Quarter: 2021Q4

REPORT INFORMATION
  Report Type: Report from Study
  Country: GT (occurrence: GT)
  Receive Date: 20210923
  Receipt Date: 20211005
  Transmission Date: 20220304
  Serious: Yes (Hospitalization)
  Sender: FDA-Public Use
  Company Number: NVSC2021GT215237

PATIENT
  Sex: Female
  Weight: 170 kg

DRUGS (2)
  1. HYDROCHLOROTHIAZIDE\VALSARTAN [Suspect]
     Active Substance: HYDROCHLOROTHIAZIDE\VALSARTAN
     Indication: Hypertension
     Dosage: UNK UNK, QD
     Route: 048
  2. REGENTAL [Concomitant]
     Indication: Product used for unknown indication
     Dosage: 01 DF (AS OXYGENATION OF THE BRAIN, TO AVOID STROKE)
     Route: 065

REACTIONS (4)
  - Ill-defined disorder [Unknown]
  - Asthenia [Unknown]
  - Speech disorder [Unknown]
  - Wrong technique in product usage process [Unknown]
